FAERS Safety Report 4558074-3 (Version None)
Quarter: 2005Q1

REPORT INFORMATION
  Report Type: 
  Country: None (occurrence: None)
  Receive Date: 20050121
  Receipt Date: 20040908
  Transmission Date: 20050727
  Serious: Yes (Other)
  Sender: FDA-Public Use
  Company Number: US-BRISTOL-MYERS SQUIBB COMPANY-12695284

PATIENT
  Age: 43 Year
  Sex: Male

DRUGS (8)
  1. SERZONE [Suspect]
     Indication: DEPRESSION
     Route: 048
     Dates: start: 19980101, end: 20000101
  2. KLONOPIN [Concomitant]
  3. GLUCOPHAGE [Concomitant]
  4. PANCREASE [Concomitant]
     Indication: PANCREATIC INSUFFICIENCY
  5. PRILOSEC [Concomitant]
     Indication: GASTROOESOPHAGEAL REFLUX DISEASE
  6. CLONIDINE [Concomitant]
     Indication: BLOOD PRESSURE
  7. CLARITIN [Concomitant]
  8. CELEBREX [Concomitant]

REACTIONS (2)
  - HEPATIC ENZYME INCREASED [None]
  - HEPATITIS [None]
